FAERS Safety Report 16693211 (Version 2)
Quarter: 2019Q3

REPORT INFORMATION
  Report Type: Spontaneous
  Country: FR (occurrence: FR)
  Receive Date: 20190812
  Receipt Date: 20190814
  Transmission Date: 20191004
  Serious: Yes (Hospitalization)
  Sender: FDA-Public Use
  Company Number: FR-MYLANLABS-2019M1074333

PATIENT
  Age: 42 Year
  Sex: Male

DRUGS (7)
  1. CLOZAPINE. [Suspect]
     Active Substance: CLOZAPINE
     Indication: PARANOID PERSONALITY DISORDER
     Dosage: 400 MILLIGRAM, QD
     Route: 048
     Dates: start: 20190208, end: 20190211
  2. ALPRAZOLAM. [Suspect]
     Active Substance: ALPRAZOLAM
     Indication: PARANOID PERSONALITY DISORDER
     Dosage: 1.5 MILLIGRAM, QD
     Route: 048
     Dates: end: 20190208
  3. TROPATEPINE [Suspect]
     Active Substance: TROPATEPINE
     Indication: PRODUCT USED FOR UNKNOWN INDICATION
     Dosage: 20 MILLIGRAM, QD
     Route: 048
     Dates: start: 20190208, end: 20190211
  4. AMANTADINE. [Concomitant]
     Active Substance: AMANTADINE HYDROCHLORIDE
     Dosage: UNK
  5. LOXAPINE SUCCINATE. [Suspect]
     Active Substance: LOXAPINE SUCCINATE
     Indication: PARANOID PERSONALITY DISORDER
     Dosage: 300 MILLIGRAM, QD
     Route: 048
     Dates: start: 20190208, end: 20190211
  6. LORMETAZEPAM [Suspect]
     Active Substance: LORMETAZEPAM
     Indication: PARANOID PERSONALITY DISORDER
     Dosage: 2 MILLIGRAM, QD
     Route: 048
     Dates: end: 20190208
  7. NITRAZEPAM [Concomitant]
     Active Substance: NITRAZEPAM
     Dosage: UNK

REACTIONS (2)
  - Drug withdrawal convulsions [Recovered/Resolved]
  - Seizure [Recovered/Resolved]

NARRATIVE: CASE EVENT DATE: 20190211
